FAERS Safety Report 4413951-9 (Version None)
Quarter: 2004Q3

REPORT INFORMATION
  Report Type: 
  Country: None (occurrence: None)
  Receive Date: 20040729
  Receipt Date: 20040726
  Transmission Date: 20050211
  Serious: Yes (Death)
  Sender: FDA-Public Use
  Company Number: TPG0T01261899

PATIENT
  Age: 76 Year
  Sex: Male

DRUGS (1)
  1. TRENANTONE (LEUPRORELIN ACETATE FOR DEPOT SUSPENSION) (11.25 MILLIGRAM [Suspect]
     Indication: PROSTATE CANCER
     Dosage: 11.25 MG (11.25 MG, 1 IN 3 M) SUBCUTANEOUS
     Route: 058
     Dates: start: 19971007, end: 19980105

REACTIONS (1)
  - DEATH [None]
